FAERS Safety Report 5778654-7 (Version None)
Quarter: 2008Q2

REPORT INFORMATION
  Report Type: 
  Country: None (occurrence: None)
  Receive Date: 20080619
  Receipt Date: 20080611
  Transmission Date: 20081010
  Serious: Yes (Other)
  Sender: FDA-Public Use
  Company Number: B0376803A

PATIENT
  Age: 17 Year
  Sex: Female

DRUGS (9)
  1. SEROXAT [Suspect]
     Indication: DEPRESSION
     Route: 048
     Dates: start: 20021114
  2. PAROXETINE HCL [Suspect]
     Indication: DEPRESSION
     Route: 048
  3. DIAZEPAM [Concomitant]
     Dates: start: 20060822
  4. FLUOXETINE [Concomitant]
     Dates: start: 20020301, end: 20020101
  5. ZOPICLONE [Concomitant]
     Dosage: 3.75MG AT NIGHT
     Dates: start: 20020301
  6. PROPRANOLOL [Concomitant]
     Dosage: 40MG TWICE PER DAY
     Dates: start: 20020501, end: 20020601
  7. SUMATRIPTAN SUCCINATE [Concomitant]
  8. YASMIN [Concomitant]
     Indication: ORAL CONTRACEPTION
  9. LITHIUM CARBONATE [Concomitant]
     Dates: start: 20040101

REACTIONS (39)
  - AGGRESSION [None]
  - AGITATION [None]
  - ANGER [None]
  - ANXIETY [None]
  - CONFUSIONAL STATE [None]
  - CRYING [None]
  - DEPRESSED MOOD [None]
  - DEPRESSION [None]
  - DEREALISATION [None]
  - DISSOCIATION [None]
  - DISTURBANCE IN ATTENTION [None]
  - DRUG WITHDRAWAL SYNDROME [None]
  - DYSPNOEA [None]
  - FATIGUE [None]
  - HEADACHE [None]
  - HYPERHIDROSIS [None]
  - INFLUENZA [None]
  - INTENTIONAL SELF-INJURY [None]
  - LETHARGY [None]
  - MALAISE [None]
  - MEMORY IMPAIRMENT [None]
  - MOOD SWINGS [None]
  - NAUSEA [None]
  - NIGHTMARE [None]
  - PAIN [None]
  - PAIN IN EXTREMITY [None]
  - PALPITATIONS [None]
  - PANIC ATTACK [None]
  - PARAESTHESIA [None]
  - PARANOIA [None]
  - PYREXIA [None]
  - SCREAMING [None]
  - SLEEP DISORDER [None]
  - SUICIDE ATTEMPT [None]
  - TEARFULNESS [None]
  - THINKING ABNORMAL [None]
  - TREMOR [None]
  - VERTIGO [None]
  - WITHDRAWAL SYNDROME [None]
